FAERS Safety Report 5914180-X (Version None)
Quarter: 2008Q4

REPORT INFORMATION
  Report Type: 
  Country: None (occurrence: None)
  Receive Date: 20081009
  Receipt Date: 20080929
  Transmission Date: 20090506
  Serious: Yes (Death)
  Sender: FDA-Public Use
  Company Number: US-ELI_LILLY_AND_COMPANY-US200809006694

PATIENT
  Sex: Female

DRUGS (2)
  1. ZYPREXA [Suspect]
     Indication: SCHIZOPHRENIA, PARANOID TYPE
     Dosage: 20 MG, EACH EVENING
     Dates: start: 20080801
  2. OPIOIDS [Concomitant]

REACTIONS (2)
  - DEATH [None]
  - DRUG LEVEL INCREASED [None]
